FAERS Safety Report 15057523 (Version 1)
Quarter: 2018Q2

REPORT INFORMATION
  Report Type: Spontaneous
  Country: DE (occurrence: DE)
  Receive Date: 20180625
  Receipt Date: 20180625
  Transmission Date: 20180711
  Serious: Yes (Other)
  Sender: FDA-Public Use
  Company Number: DE-ACCORD-068620

PATIENT
  Age: 74 Year
  Sex: Male
  Weight: 65.8 kg

DRUGS (2)
  1. PACLITAXEL/PACLITAXEL LIPOSOME [Concomitant]
     Indication: NON-SMALL CELL LUNG CANCER
  2. CARBOPLATIN. [Suspect]
     Active Substance: CARBOPLATIN
     Indication: NON-SMALL CELL LUNG CANCER
     Dates: start: 20171122

REACTIONS (1)
  - General physical health deterioration [Unknown]
